FAERS Safety Report 9584697 (Version 1)
Quarter: 2013Q4

REPORT INFORMATION
  Report Type: Spontaneous
  Country: US (occurrence: US)
  Receive Date: 20131002
  Receipt Date: 20131002
  Transmission Date: 20140711
  Serious: Yes (Other)
  Sender: FDA-Public Use
  Company Number: US-AMGEN-USASP2013054527

PATIENT
  Age: 54 Year
  Sex: Female

DRUGS (3)
  1. ENBREL [Suspect]
     Indication: RHEUMATOID ARTHRITIS
     Dosage: 50 MG, QWK
     Route: 058
  2. FLEXERIL                           /00428402/ [Concomitant]
     Dosage: UNK
  3. VITAMINS /90003601/ [Concomitant]
     Dosage: UNK

REACTIONS (3)
  - Tooth infection [Unknown]
  - Injection site bruising [Unknown]
  - Injection site pain [Unknown]
